FAERS Safety Report 7007655-6 (Version None)
Quarter: 2010Q3

REPORT INFORMATION
  Report Type: 
  Country: None (occurrence: None)
  Receive Date: 20100922
  Receipt Date: 20100914
  Transmission Date: 20110219
  Serious: Yes (Other)
  Sender: FDA-Public Use
  Company Number: JP-PFIZER INC-2010109069

PATIENT
  Age: 63 Year
  Sex: Male

DRUGS (3)
  1. DOXAZOSIN MESYLATE [Suspect]
     Dosage: 4 MG/DAY
     Route: 048
     Dates: start: 20090901
  2. NU LOTAN [Concomitant]
     Dosage: 50 MG/DAY
     Route: 048
     Dates: start: 20090901
  3. CONIEL [Concomitant]
     Dosage: UNK
     Route: 048
     Dates: start: 20090901

REACTIONS (2)
  - ARTHRALGIA [None]
  - BLOOD URIC ACID INCREASED [None]
